FAERS Safety Report 7570852-5 (Version None)
Quarter: 2011Q2

REPORT INFORMATION
  Report Type: 
  Country: None (occurrence: None)
  Receive Date: 20110622
  Receipt Date: 20110622
  Transmission Date: 20111010
  Serious: Yes (Other)
  Sender: FDA-Public Use
  Company Number: None

PATIENT
  Sex: Female
  Weight: 55.3388 kg

DRUGS (2)
  1. NITROFURANTOIN MONOHYDRATE/MACROCRYSTALS [Suspect]
     Indication: URINARY TRACT INFECTION
     Dosage: 100 MG 1/2XDAY ORAL
     Route: 048
     Dates: start: 20110601
  2. NITROFURANTOIN MONOHYDRATE/MACROCRYSTALS [Suspect]
     Indication: URINARY TRACT INFECTION
     Dosage: 100 MG 1/2XDAY ORAL
     Route: 048
     Dates: start: 20110531

REACTIONS (6)
  - PALPITATIONS [None]
  - HEADACHE [None]
  - CHILLS [None]
  - VOMITING [None]
  - MYALGIA [None]
  - HYPERHIDROSIS [None]
